FAERS Safety Report 10244009 (Version 1)
Quarter: 2014Q2

REPORT INFORMATION
  Report Type: Other
  Country: DE (occurrence: DE)
  Receive Date: 20140618
  Receipt Date: 20140618
  Transmission Date: 20141212
  Serious: Yes (Hospitalization)
  Sender: FDA-Public Use
  Company Number: DE-LUPIN PHARMACEUTICALS INC.-E2B_00001294

PATIENT
  Age: 71 Year
  Sex: Female
  Weight: 88 kg

DRUGS (2)
  1. ELIQUIS [Suspect]
     Indication: HIP ARTHROPLASTY
     Route: 048
     Dates: start: 20130625, end: 20130730
  2. SIMVASTATIN [Suspect]
     Indication: PRODUCT USED FOR UNKNOWN INDICATION
     Route: 048

REACTIONS (3)
  - Blood bilirubin increased [Recovering/Resolving]
  - Jaundice [Recovering/Resolving]
  - Transaminases increased [Recovering/Resolving]
